FAERS Safety Report 6870878-0 (Version None)
Quarter: 2010Q3

REPORT INFORMATION
  Report Type: 
  Country: None (occurrence: None)
  Receive Date: 20100723
  Receipt Date: 20100712
  Transmission Date: 20110219
  Serious: Yes (Other)
  Sender: FDA-Public Use
  Company Number: FR-JNJFOC-20100703811

PATIENT
  Age: 4 Year
  Sex: Male

DRUGS (1)
  1. REMICADE [Suspect]
     Indication: DRUG EXPOSURE DURING PREGNANCY
     Route: 064

REACTIONS (2)
  - MATERNAL DRUGS AFFECTING FOETUS [None]
  - NEPHROBLASTOMA [None]
